FAERS Safety Report 26025491 (Version 1)
Quarter: 2025Q4

REPORT INFORMATION
  Report Type: Spontaneous
  Country: TW (occurrence: TW)
  Receive Date: 20251111
  Receipt Date: 20251111
  Transmission Date: 20260118
  Serious: Yes (Hospitalization, Other)
  Sender: STRIDES
  Company Number: TW-STRIDES ARCOLAB LIMITED-2025SP013873

PATIENT
  Age: 25 Year
  Sex: Female

DRUGS (7)
  1. PREDNISONE [Suspect]
     Active Substance: PREDNISONE
     Indication: Primary mediastinal large B-cell lymphoma
     Dosage: 100 MILLIGRAM, ON DAYS 1-5; R-CEOP REGIMEN
     Route: 065
  2. RITUXIMAB [Suspect]
     Active Substance: RITUXIMAB
     Indication: Primary mediastinal large B-cell lymphoma
     Dosage: 375 MILLIGRAM/SQ. METER, ON DAY 1; R-CEOP REGIMEN
     Route: 065
  3. CYCLOPHOSPHAMIDE [Suspect]
     Active Substance: CYCLOPHOSPHAMIDE
     Indication: Primary mediastinal large B-cell lymphoma
     Dosage: 750 MILLIGRAM/SQ. METER, ON DAY 2; R-CEOP REGIMEN
     Route: 065
  4. EPIRUBICIN [Suspect]
     Active Substance: EPIRUBICIN
     Indication: Primary mediastinal large B-cell lymphoma
     Dosage: 75 MILLIGRAM/SQ. METER, ON DAY 2; R-CEOP REGIMEN
     Route: 065
  5. VINCRISTINE [Suspect]
     Active Substance: VINCRISTINE
     Indication: Primary mediastinal large B-cell lymphoma
     Dosage: 2 MILLIGRAM, ON DAY 2; R-CEOP REGIMEN
     Route: 065
  6. FILGRASTIM [Concomitant]
     Active Substance: FILGRASTIM
     Indication: Prophylaxis
     Dosage: UNK
     Route: 065
  7. FILGRASTIM [Concomitant]
     Active Substance: FILGRASTIM
     Indication: Febrile neutropenia

REACTIONS (3)
  - Febrile neutropenia [Unknown]
  - Urinary tract infection [Unknown]
  - Septic shock [Unknown]
